FAERS Safety Report 23079929 (Version 1)
Quarter: 2023Q4

REPORT INFORMATION
  Report Type: Spontaneous
  Country: US (occurrence: None)
  Receive Date: 20231018
  Receipt Date: 20231018
  Transmission Date: 20240109
  Serious: No
  Sender: FDA-Public Use
  Company Number: None

PATIENT
  Age: 65 Year
  Sex: Female

DRUGS (1)
  1. ADBRY [Suspect]
     Active Substance: TRALOKINUMAB-LDRM
     Indication: Dermatitis atopic
     Dosage: FREQUENCY : EVERY OTHER WEEK;?INJECT  600 MG (4 SYRINGES) SUBCUTANEOUSLY ON DAY 1, THEN 300 MG (2 SY
     Route: 058
     Dates: start: 202307

REACTIONS (2)
  - Therapy interrupted [None]
  - Hospitalisation [None]
